FAERS Safety Report 6299591-8 (Version None)
Quarter: 2009Q3

REPORT INFORMATION
  Report Type: 
  Country: None (occurrence: None)
  Receive Date: 20090805
  Receipt Date: 20090805
  Transmission Date: 20100115
  Serious: Yes (Hospitalization)
  Sender: FDA-Public Use
  Company Number: None

PATIENT
  Sex: Male
  Weight: 75.7507 kg

DRUGS (6)
  1. CLEVIPREX [Suspect]
     Indication: HYPERTENSION
     Dosage: 2MG/HR, TITRATE TO SBP {150 CONTINUOUS IV DRIP
     Route: 041
     Dates: start: 20090211, end: 20090211
  2. LABETALOL HCL [Concomitant]
  3. AMLODIPINE [Concomitant]
  4. CLONIDINE [Concomitant]
  5. COREG [Concomitant]
  6. NICARDIPINE HYDROCHLORIDE [Concomitant]

REACTIONS (2)
  - CARDIAC ARREST [None]
  - HYPERTENSION [None]
